FAERS Safety Report 14280140 (Version 1)
Quarter: 2017Q4

REPORT INFORMATION
  Report Type: Spontaneous
  Country: US (occurrence: None)
  Receive Date: 20171212
  Receipt Date: 20171212
  Transmission Date: 20180321
  Serious: Yes (Hospitalization)
  Sender: FDA-Public Use
  Company Number: None

PATIENT
  Age: 69 Year
  Sex: Male

DRUGS (1)
  1. ALECENSA [Suspect]
     Active Substance: ALECTINIB HYDROCHLORIDE
     Indication: LUNG NEOPLASM MALIGNANT
     Dosage: 600 MG BID BY MOUTH WITH BREAKFAST AND DINNER
     Route: 048
     Dates: start: 20171121

REACTIONS (2)
  - Thrombosis [None]
  - Intestinal obstruction [None]

NARRATIVE: CASE EVENT DATE: 20171122
